FAERS Safety Report 13244086 (Version 1)
Quarter: 2017Q1

REPORT INFORMATION
  Report Type: Spontaneous
  Country: US (occurrence: US)
  Receive Date: 20170216
  Receipt Date: 20170216
  Transmission Date: 20170428
  Serious: No
  Sender: FDA-Public Use
  Company Number: US-RELYPSA-RLY2017000203

PATIENT
  Age: 75 Year
  Sex: Male

DRUGS (14)
  1. VELTASSA [Suspect]
     Active Substance: PATIROMER
     Dosage: 16.8 G, UNKNOWN
     Route: 048
     Dates: start: 201608, end: 2016
  2. SIMVASTIN [Concomitant]
     Active Substance: SIMVASTATIN
  3. FOLIC ACID. [Concomitant]
     Active Substance: FOLIC ACID
  4. DEPAKOTE [Concomitant]
     Active Substance: DIVALPROEX SODIUM
  5. VELTASSA [Suspect]
     Active Substance: PATIROMER
     Indication: BLOOD POTASSIUM INCREASED
     Dosage: 8.4 G, QD
     Route: 048
     Dates: start: 201605, end: 201608
  6. BABY ASPIRIN [Concomitant]
     Active Substance: ASPIRIN
  7. MEVACOR [Concomitant]
     Active Substance: LOVASTATIN
  8. GABAPENTIN. [Concomitant]
     Active Substance: GABAPENTIN
  9. FINASTERIDE. [Concomitant]
     Active Substance: FINASTERIDE
  10. BUPROPION. [Concomitant]
     Active Substance: BUPROPION
  11. TAMSULOSIN [Concomitant]
     Active Substance: TAMSULOSIN
  12. VELTASSA [Suspect]
     Active Substance: PATIROMER
     Dosage: 25.2 G, UNKNOWN
     Route: 048
     Dates: start: 2016
  13. PROLIA [Concomitant]
     Active Substance: DENOSUMAB
  14. BUMETANIDE. [Concomitant]
     Active Substance: BUMETANIDE

REACTIONS (6)
  - Blood creatinine increased [Unknown]
  - Drug ineffective [Unknown]
  - Gait disturbance [Unknown]
  - Sciatica [Not Recovered/Not Resolved]
  - Pain [Not Recovered/Not Resolved]
  - Nerve compression [Not Recovered/Not Resolved]

NARRATIVE: CASE EVENT DATE: 2016
